FAERS Safety Report 7303852-0 (Version None)
Quarter: 2011Q1

REPORT INFORMATION
  Report Type: 
  Country: None (occurrence: None)
  Receive Date: 20110221
  Receipt Date: 20110215
  Transmission Date: 20110831
  Serious: Yes (Life-Threatening, Hospitalization)
  Sender: FDA-Public Use
  Company Number: A0911176A

PATIENT
  Age: 63 Year
  Sex: Female
  Weight: 68 kg

DRUGS (3)
  1. UNKNOWN [Concomitant]
  2. TYKERB [Suspect]
     Indication: BREAST CANCER
     Dosage: 250MG FOUR TIMES PER DAY
     Route: 048
     Dates: start: 20101029
  3. XELODA [Suspect]
     Dosage: 2000MG TWICE PER DAY
     Route: 048
     Dates: start: 20101029

REACTIONS (3)
  - DIARRHOEA [None]
  - LIPASE INCREASED [None]
  - PANCREATITIS [None]
